FAERS Safety Report 24685416 (Version 1)
Quarter: 2024Q4

REPORT INFORMATION
  Report Type: Spontaneous
  Country: KR (occurrence: KR)
  Receive Date: 20241202
  Receipt Date: 20241202
  Transmission Date: 20250114
  Serious: Yes (Other)
  Sender: MERCK
  Company Number: KR-009507513-2411KOR010048

PATIENT
  Sex: Male

DRUGS (2)
  1. KEYTRUDA [Suspect]
     Active Substance: PEMBROLIZUMAB
     Dosage: 200 MILLIGRAM, QD; FORMULATION: VIAL
     Route: 042
     Dates: start: 20231013, end: 20231013
  2. PACLITAXEL [Suspect]
     Active Substance: PACLITAXEL
     Dosage: 294 MILLIGRAM, QD; FOMRULATION: VIAL
     Route: 042
     Dates: start: 20231013, end: 20231013

REACTIONS (1)
  - Leukopenia [Recovered/Resolved]

NARRATIVE: CASE EVENT DATE: 20231023
